FAERS Safety Report 5860911-7 (Version None)
Quarter: 2008Q3

REPORT INFORMATION
  Report Type: 
  Country: None (occurrence: None)
  Receive Date: 20080827
  Receipt Date: 20080107
  Transmission Date: 20090109
  Serious: No
  Sender: FDA-Public Use
  Company Number: US-ABBOTT-08P-163-0432559-00

PATIENT
  Sex: Male

DRUGS (5)
  1. NIASPAN [Suspect]
     Indication: DRUG USE FOR UNKNOWN INDICATION
     Route: 048
     Dates: start: 20071101
  2. NIASPAN [Suspect]
     Route: 048
  3. INSULIN [Concomitant]
     Indication: DRUG USE FOR UNKNOWN INDICATION
  4. ANTIPLATELET DRUG [Concomitant]
     Indication: DRUG USE FOR UNKNOWN INDICATION
  5. CHOLESTEROL MEDICATIONS [Concomitant]
     Indication: DRUG USE FOR UNKNOWN INDICATION

REACTIONS (1)
  - FLUSHING [None]
